FAERS Safety Report 5128983-5 (Version None)
Quarter: 2006Q4

REPORT INFORMATION
  Report Type: 
  Country: None (occurrence: None)
  Receive Date: 20061016
  Receipt Date: 20061016
  Transmission Date: 20070319
  Serious: Yes (Life-Threatening, Hospitalization)
  Sender: FDA-Public Use
  Company Number: None

PATIENT
  Sex: Male
  Weight: 95.2554 kg

DRUGS (1)
  1. PROCHLORPERAZINE [Suspect]
     Indication: NAUSEA
     Dosage: 10 MG 4 TIMES A DAY PO
     Route: 048
     Dates: start: 20061003, end: 20061003

REACTIONS (4)
  - CARDIAC DISORDER [None]
  - COMA [None]
  - FEELING ABNORMAL [None]
  - PYREXIA [None]
